FAERS Safety Report 4897441-5 (Version None)
Quarter: 2006Q1

REPORT INFORMATION
  Report Type: 
  Country: None (occurrence: None)
  Receive Date: 20060130
  Receipt Date: 20060130
  Transmission Date: 20060701
  Serious: Yes (Life-Threatening, Disabling, Other)
  Sender: FDA-Public Use
  Company Number: None

PATIENT
  Age: 45 Year
  Sex: Female
  Weight: 74.8435 kg

DRUGS (3)
  1. OXYCONTIN [Suspect]
     Indication: ARACHNOIDITIS
     Dosage: 3 PILLS 4X DAILY
  2. OXYCONTIN [Suspect]
     Indication: NERVE INJURY
     Dosage: 3 PILLS 4X DAILY
  3. OXYCONTIN [Suspect]
     Indication: SPINAL FUSION SURGERY
     Dosage: 3 PILLS 4X DAILY

REACTIONS (8)
  - BRADYPHRENIA [None]
  - BRAIN OEDEMA [None]
  - DRUG HYPERSENSITIVITY [None]
  - FEELING ABNORMAL [None]
  - HEADACHE [None]
  - LETHARGY [None]
  - PHARMACEUTICAL PRODUCT COMPLAINT [None]
  - RENAL DISORDER [None]
